FAERS Safety Report 8014922-6 (Version None)
Quarter: 2011Q4

REPORT INFORMATION
  Report Type: 
  Country: None (occurrence: None)
  Receive Date: 20111229
  Receipt Date: 20111222
  Transmission Date: 20120403
  Serious: Yes (Hospitalization, Other)
  Sender: FDA-Public Use
  Company Number: US-ROCHE-1019038

PATIENT
  Sex: Female
  Weight: 77.18 kg

DRUGS (6)
  1. LEVOTHYROXINE SODIUM [Concomitant]
     Indication: HYPOTHYROIDISM
  2. AVASTIN [Suspect]
     Indication: GLIOBLASTOMA
     Route: 042
     Dates: start: 20070701, end: 20111027
  3. INSULIN [Concomitant]
     Indication: DIABETES MELLITUS
  4. AVASTIN [Suspect]
     Route: 042
     Dates: start: 20110301
  5. DESMOPRESSIN ACETATE [Concomitant]
     Indication: HYPOPITUITARISM
  6. DECADRON [Concomitant]

REACTIONS (2)
  - CEREBRAL HAEMORRHAGE [None]
  - HERNIA REPAIR [None]
